FAERS Safety Report 6234819-1 (Version None)
Quarter: 2009Q2

REPORT INFORMATION
  Report Type: 
  Country: None (occurrence: None)
  Receive Date: 20090618
  Receipt Date: 20090612
  Transmission Date: 20091009
  Serious: Yes (Life-Threatening)
  Sender: FDA-Public Use
  Company Number: JP-ABBOTT-09P-087-0578479-00

PATIENT
  Sex: Male

DRUGS (4)
  1. CLARITHROMYCIN [Suspect]
     Indication: HELICOBACTER INFECTION
     Route: 048
     Dates: start: 20090418, end: 20090421
  2. LANSOPRAZOLE [Suspect]
     Indication: HELICOBACTER INFECTION
     Route: 048
     Dates: start: 20090418, end: 20090421
  3. AMOXICILLIN [Suspect]
     Indication: HELICOBACTER INFECTION
     Route: 048
     Dates: start: 20090418, end: 20090421
  4. BLOPRESS [Concomitant]
     Indication: HYPERTENSION
     Route: 048
     Dates: start: 20021004, end: 20090421

REACTIONS (1)
  - ARRHYTHMIA [None]
